FAERS Safety Report 7362031-1 (Version None)
Quarter: 2011Q1

REPORT INFORMATION
  Report Type: 
  Country: None (occurrence: None)
  Receive Date: 20110318
  Receipt Date: 20110314
  Transmission Date: 20110831
  Serious: Yes (Death, Hospitalization, Other)
  Sender: FDA-Public Use
  Company Number: IT-BAYER-201032106GPV

PATIENT
  Sex: Male

DRUGS (7)
  1. ASPIRIN [Concomitant]
     Dosage: 100 MG (DAILY DOSE), , ORAL
     Route: 048
     Dates: start: 20060202, end: 20100707
  2. ASPIRIN [Concomitant]
     Dosage: 100 MG (DAILY DOSE), , ORAL
     Route: 048
     Dates: start: 20020101
  3. LACIDIPINE [Concomitant]
     Dosage: 4 MG (DAILY DOSE), , ORAL
     Route: 048
     Dates: start: 20100202, end: 20100707
  4. PROCAPTAN [Concomitant]
     Dosage: 4 MG (DAILY DOSE), , ORAL
     Route: 048
     Dates: start: 20100202, end: 20100707
  5. SORAFENIB [Suspect]
     Indication: HEPATIC NEOPLASM MALIGNANT
     Route: 048
     Dates: start: 20100618, end: 20100707
  6. PERINDOPRIL [Concomitant]
     Dosage: 5 MG (DAILY DOSE), ,
     Dates: start: 20020101
  7. LACIDIPINE [Concomitant]
     Dosage: 4 MG (DAILY DOSE), ,
     Dates: start: 20020101

REACTIONS (2)
  - RENAL FAILURE [None]
  - HYPOTENSION [None]
